FAERS Safety Report 4835755-5 (Version None)
Quarter: 2005Q4

REPORT INFORMATION
  Report Type: 
  Country: None (occurrence: None)
  Receive Date: 20051123
  Receipt Date: 20040616
  Transmission Date: 20060501
  Serious: Yes (Hospitalization, Other)
  Sender: FDA-Public Use
  Company Number: US-GLAXOSMITHKLINE-A0515191A

PATIENT
  Age: 21 Year
  Sex: Female
  Weight: 52.3 kg

DRUGS (2)
  1. PAXIL CR [Suspect]
     Indication: ANXIETY
     Route: 048
     Dates: start: 20020711, end: 20020827
  2. RISPERDAL [Concomitant]
     Indication: IMPULSE-CONTROL DISORDER
     Dosage: 2MG AT NIGHT
     Route: 048
     Dates: start: 20020801

REACTIONS (11)
  - ANOREXIA [None]
  - ANXIETY [None]
  - BINGE EATING [None]
  - BIPOLAR DISORDER [None]
  - EATING DISORDER [None]
  - INTENTIONAL SELF-INJURY [None]
  - PANIC ATTACK [None]
  - PURGING [None]
  - SELF MUTILATION [None]
  - SKIN LACERATION [None]
  - WEIGHT DECREASED [None]
